FAERS Safety Report 10706934 (Version 10)
Quarter: 2016Q4

REPORT INFORMATION
  Report Type: Spontaneous
  Country: US (occurrence: US)
  Receive Date: 20150113
  Receipt Date: 20161130
  Transmission Date: 20170206
  Serious: Yes (Hospitalization, Other)
  Sender: FDA-Public Use
  Company Number: US-PFIZER INC-2015006457

PATIENT
  Age: 91 Year
  Sex: Female
  Weight: 68 kg

DRUGS (5)
  1. LABETALOL [Concomitant]
     Active Substance: LABETALOL\LABETALOL HYDROCHLORIDE
     Dosage: UNK, 2X/DAY
  2. ENALAPRIL [Concomitant]
     Active Substance: ENALAPRIL
     Dosage: 1 DF, 2X/DAY
  3. SIMVASTATIN. [Concomitant]
     Active Substance: SIMVASTATIN
     Dosage: UNK, 1X/DAY
     Dates: start: 201503
  4. LUMIGAN [Concomitant]
     Active Substance: BIMATOPROST
     Dosage: 0.10 ONCE AT NIGHT IN EACH EYE
     Route: 047
  5. REVATIO [Suspect]
     Active Substance: SILDENAFIL CITRATE
     Indication: DYSPNOEA
     Dosage: 20 MG, 3X/DAY

REACTIONS (8)
  - Visual impairment [Unknown]
  - Fall [Not Recovered/Not Resolved]
  - Upper limb fracture [Not Recovered/Not Resolved]
  - Corneal disorder [Unknown]
  - Pain in extremity [Unknown]
  - Intestinal obstruction [Unknown]
  - Clavicle fracture [Not Recovered/Not Resolved]
  - Volvulus [Unknown]

NARRATIVE: CASE EVENT DATE: 20141007
